FAERS Safety Report 5088603-5 (Version None)
Quarter: 2006Q3

REPORT INFORMATION
  Report Type: 
  Country: None (occurrence: None)
  Receive Date: 20060731
  Receipt Date: 20060310
  Transmission Date: 20061208
  Serious: Yes (Hospitalization)
  Sender: FDA-Public Use
  Company Number: US200511003019

PATIENT
  Age: 74 Year
  Sex: Female

DRUGS (9)
  1. FORTEO [Suspect]
     Indication: OSTEOPOROSIS
     Dates: start: 20050801, end: 20051118
  2. FORTEO [Concomitant]
  3. FORTEO [Concomitant]
  4. PERCOCET [Concomitant]
  5. IMDUR [Concomitant]
  6. MIACALCIN [Concomitant]
  7. COZAAR [Concomitant]
  8. TOPROL-XL [Concomitant]
  9. AMLODIPINE BESYLATE [Concomitant]

REACTIONS (2)
  - ASPIRATION [None]
  - PNEUMONIA [None]
